FAERS Safety Report 25254864 (Version 2)
Quarter: 2025Q2

REPORT INFORMATION
  Report Type: Report from Study
  Country: US (occurrence: US)
  Receive Date: 20250430
  Receipt Date: 20250502
  Transmission Date: 20250717
  Serious: Yes (Other)
  Sender: ALEXION PHARMACEUTICALS
  Company Number: US-AstraZeneca-CH-00857237A

PATIENT
  Age: 61 Year
  Weight: 107 kg

DRUGS (3)
  1. DAPAGLIFLOZIN [Suspect]
     Active Substance: DAPAGLIFLOZIN
  2. INFLUENZA VIRUS VACCINE [Suspect]
     Active Substance: INFLUENZA VIRUS VACCINE
  3. COVID-19 VACCINE NOS [Suspect]
     Active Substance: COVID-19 VACCINE

REACTIONS (16)
  - Cardiac failure congestive [Unknown]
  - Cardiac failure [Unknown]
  - Dilated cardiomyopathy [Unknown]
  - Drug intolerance [Unknown]
  - Inability to afford medication [Unknown]
  - Pain [Unknown]
  - Anxiety [Unknown]
  - Depression [Unknown]
  - Asthma [Unknown]
  - Metabolic function test [Unknown]
  - Medication error [Unknown]
  - Hypotension [Unknown]
  - Restless legs syndrome [Unknown]
  - Hypercholesterolaemia [Unknown]
  - Seasonal allergy [Unknown]
  - Vitamin D deficiency [Unknown]
